FAERS Safety Report 19513571 (Version 18)
Quarter: 2022Q2

REPORT INFORMATION
  Report Type: Report from Study
  Country: US (occurrence: US)
  Receive Date: 20210709
  Receipt Date: 20220624
  Transmission Date: 20220721
  Serious: Yes (Hospitalization, Other)
  Sender: FDA-Public Use
  Company Number: US-GLAXOSMITHKLINE-US2021AMR063682

PATIENT

DRUGS (1)
  1. BELANTAMAB MAFODOTIN [Suspect]
     Active Substance: BELANTAMAB MAFODOTIN
     Indication: Product used for unknown indication
     Dosage: UNK
     Dates: start: 20201215

REACTIONS (12)
  - Hospitalisation [Unknown]
  - Punctate keratitis [Recovering/Resolving]
  - Keratopathy [Recovering/Resolving]
  - Visual acuity reduced [Recovering/Resolving]
  - Lagophthalmos [Recovering/Resolving]
  - Night blindness [Unknown]
  - Corneal disorder [Recovering/Resolving]
  - Dry eye [Recovering/Resolving]
  - Photophobia [Unknown]
  - Foreign body sensation in eyes [Unknown]
  - Vision blurred [Unknown]
  - Condition aggravated [Unknown]

NARRATIVE: CASE EVENT DATE: 20210217
